FAERS Safety Report 7320631-9 (Version None)
Quarter: 2011Q1

REPORT INFORMATION
  Report Type: 
  Country: None (occurrence: None)
  Receive Date: 20110228
  Receipt Date: 20110217
  Transmission Date: 20110831
  Serious: Yes (Hospitalization)
  Sender: FDA-Public Use
  Company Number: US-JNJFOC-20110205335

PATIENT
  Sex: Female
  Weight: 88.45 kg

DRUGS (9)
  1. ANTIHISTAMINES [Concomitant]
     Indication: PREMEDICATION
  2. ANTISPASMODICS [Concomitant]
     Indication: CROHN'S DISEASE
  3. INFLIXIMAB, RECOMBINANT [Suspect]
     Route: 042
  4. ANTIDEPRESSANTS [Concomitant]
     Indication: CROHN'S DISEASE
  5. NARCOTIC ANALGESICS, NOS [Concomitant]
     Indication: CROHN'S DISEASE
  6. INFLIXIMAB, RECOMBINANT [Suspect]
     Indication: CROHN'S DISEASE
     Route: 042
  7. ACETAMINOPHEN [Concomitant]
     Indication: PREMEDICATION
  8. INFLIXIMAB, RECOMBINANT [Suspect]
     Route: 042
  9. CORTICOSTEROIDS [Concomitant]
     Indication: PREMEDICATION

REACTIONS (5)
  - ESCHERICHIA INFECTION [None]
  - SEPSIS [None]
  - KLEBSIELLA INFECTION [None]
  - ENTEROBACTER INFECTION [None]
  - URINARY TRACT INFECTION [None]
